FAERS Safety Report 7472674-2 (Version None)
Quarter: 2011Q1

REPORT INFORMATION
  Report Type: 
  Country: None (occurrence: None)
  Receive Date: 20110302
  Receipt Date: 20100908
  Transmission Date: 20110831
  Serious: Yes (Other)
  Sender: FDA-Public Use
  Company Number: 163-21880-10070239

PATIENT
  Age: 79 Year
  Sex: Male

DRUGS (4)
  1. REVLIMID [Suspect]
     Indication: MULTIPLE MYELOMA
     Dosage: 25 MG, DAILY FOR 21 DAYS Q 28 DAYS, PO; 25 MG, DAILY FOR 21 DAYS EVERY 28 DAYS, PO; 10 MG, 1 IN 1 D,
     Route: 048
     Dates: start: 20100601
  2. REVLIMID [Suspect]
     Indication: MULTIPLE MYELOMA
     Dosage: 25 MG, DAILY FOR 21 DAYS Q 28 DAYS, PO; 25 MG, DAILY FOR 21 DAYS EVERY 28 DAYS, PO; 10 MG, 1 IN 1 D,
     Route: 048
     Dates: start: 20100301
  3. REVLIMID [Suspect]
     Indication: MULTIPLE MYELOMA
     Dosage: 25 MG, DAILY FOR 21 DAYS Q 28 DAYS, PO; 25 MG, DAILY FOR 21 DAYS EVERY 28 DAYS, PO; 10 MG, 1 IN 1 D,
     Route: 048
     Dates: start: 20100801
  4. NITROGLYCERIN [Concomitant]

REACTIONS (7)
  - RETCHING [None]
  - CHEST PAIN [None]
  - INCONTINENCE [None]
  - VOMITING [None]
  - DYSPNOEA [None]
  - JOINT RANGE OF MOTION DECREASED [None]
  - NAUSEA [None]
